FAERS Safety Report 25824794 (Version 1)
Quarter: 2025Q3

REPORT INFORMATION
  Report Type: Spontaneous
  Country: EU (occurrence: EU)
  Receive Date: 20250919
  Receipt Date: 20250919
  Transmission Date: 20251020
  Serious: Yes (Other)
  Sender: MERCK SHARP & DOHME LLC
  Company Number: None

PATIENT
  Age: 62 Year
  Sex: Female
  Weight: 77 kg

DRUGS (16)
  1. PEMBROLIZUMAB [Suspect]
     Active Substance: PEMBROLIZUMAB
     Indication: Breast cancer
     Dosage: C3
     Route: 042
     Dates: start: 20240423, end: 20240507
  2. PEMBROLIZUMAB [Suspect]
     Active Substance: PEMBROLIZUMAB
     Indication: Breast cancer
     Dosage: C4
     Route: 042
     Dates: start: 20240514, end: 20240528
  3. PEMBROLIZUMAB [Suspect]
     Active Substance: PEMBROLIZUMAB
     Indication: Breast cancer
     Dosage: C1
     Route: 042
     Dates: start: 20240312, end: 20240326
  4. PEMBROLIZUMAB [Suspect]
     Active Substance: PEMBROLIZUMAB
     Indication: Breast cancer
     Dosage: TOTAL 4 CURES
     Route: 042
     Dates: start: 20240604, end: 20240806
  5. PEMBROLIZUMAB [Suspect]
     Active Substance: PEMBROLIZUMAB
     Indication: Breast cancer
     Dosage: C2
     Route: 042
     Dates: start: 20240402, end: 20240416
  6. PEMBROLIZUMAB [Suspect]
     Active Substance: PEMBROLIZUMAB
     Indication: Breast cancer
     Dosage: TOTAL 9 CURES
     Route: 042
     Dates: start: 20241008, end: 20250331
  7. EPIRUBICIN [Concomitant]
     Active Substance: EPIRUBICIN
     Indication: Breast cancer
     Dosage: TOTAL 4 CYCLES
     Route: 042
     Dates: start: 20240604, end: 20240806
  8. KARDEGIC [Concomitant]
     Active Substance: ASPIRIN DL-LYSINE
     Indication: Cardiovascular event prophylaxis
     Dosage: MORNING
     Route: 048
  9. PACLITAXEL [Concomitant]
     Active Substance: PACLITAXEL
     Indication: Breast cancer
     Dosage: 146.4 MG PAR CURE, TOTAL 4 CURES
     Route: 042
     Dates: start: 20240312, end: 20240528
  10. ATACAND 8 mg, scored tablet [Concomitant]
     Indication: Hypertension
     Dosage: MORNING
     Route: 048
  11. CRESTOR [Concomitant]
     Active Substance: ROSUVASTATIN CALCIUM
     Indication: Dyslipidaemia
     Dosage: SOIR
     Route: 048
  12. DAPAGLIFLOZIN [Concomitant]
     Active Substance: DAPAGLIFLOZIN
     Indication: Type 2 diabetes mellitus
     Dosage: MORNING
     Route: 048
  13. CYCLOPHOSPHAMIDE [Concomitant]
     Active Substance: CYCLOPHOSPHAMIDE
     Indication: Breast cancer
     Dosage: TOTAL 4 CYCLES
     Route: 042
     Dates: start: 20240604, end: 20240806
  14. ZYMAD 50,000 IU, oral solution in ampoule [Concomitant]
     Indication: Vitamin D deficiency
     Route: 048
  15. TEMERIT 5 mg, quadra-scored tablet [Concomitant]
     Indication: Hypertension
     Dosage: MORNING
     Route: 048
  16. CARBOPLATIN [Concomitant]
     Active Substance: CARBOPLATIN
     Indication: Breast cancer
     Dosage: TOTAL 4 CURES
     Route: 042
     Dates: start: 20240312, end: 20240528

REACTIONS (1)
  - Pancreatitis chronic [Not Recovered/Not Resolved]

NARRATIVE: CASE EVENT DATE: 20250424
